FAERS Safety Report 17572750 (Version 1)
Quarter: 2020Q1

REPORT INFORMATION
  Report Type: Report from Study
  Country: IT (occurrence: IT)
  Receive Date: 20200323
  Receipt Date: 20200323
  Transmission Date: 20200409
  Serious: Yes (Other)
  Sender: FDA-Public Use
  Company Number: IT-BRISTOL-MYERS SQUIBB COMPANY-BMS-2020-022739

PATIENT
  Age: 66 Year
  Sex: Male

DRUGS (1)
  1. WARFARIN SODIUM. [Suspect]
     Active Substance: WARFARIN SODIUM
     Indication: ATRIAL FIBRILLATION
     Dosage: 1 DOSAGE FORM
     Route: 048
     Dates: start: 20160429

REACTIONS (2)
  - Testicular swelling [Recovering/Resolving]
  - Testicular oedema [Recovering/Resolving]

NARRATIVE: CASE EVENT DATE: 20200227
